FAERS Safety Report 12287963 (Version 3)
Quarter: 2016Q2

REPORT INFORMATION
  Report Type: Spontaneous
  Country: US (occurrence: US)
  Receive Date: 20160420
  Receipt Date: 20160519
  Transmission Date: 20160815
  Serious: No
  Sender: FDA-Public Use
  Company Number: US-ACTELION PHARMACEUTICALS US, INC.-A-NJ2016-134728

PATIENT
  Age: 61 Year
  Sex: Female

DRUGS (13)
  1. TOPROL XL [Concomitant]
     Active Substance: METOPROLOL SUCCINATE
  2. VELETRI [Suspect]
     Active Substance: EPOPROSTENOL
     Indication: PULMONARY ARTERIAL HYPERTENSION
     Route: 042
  3. SPIRONOLACTONE. [Concomitant]
     Active Substance: SPIRONOLACTONE
  4. NASONEX [Concomitant]
     Active Substance: MOMETASONE FUROATE
  5. OMEPRAZOLE. [Concomitant]
     Active Substance: OMEPRAZOLE
  6. UPTRAVI [Suspect]
     Active Substance: SELEXIPAG
     Indication: PULMONARY ARTERIAL HYPERTENSION
     Route: 048
  7. SYNTHROID [Concomitant]
     Active Substance: LEVOTHYROXINE SODIUM
  8. OPSUMIT [Suspect]
     Active Substance: MACITENTAN
     Indication: PULMONARY ARTERIAL HYPERTENSION
     Dosage: 10 MG, UNK
     Route: 048
     Dates: start: 20140310
  9. LASIX [Concomitant]
     Active Substance: FUROSEMIDE
  10. ZYRTEC [Concomitant]
     Active Substance: CETIRIZINE HYDROCHLORIDE
  11. TRAMADOL. [Concomitant]
     Active Substance: TRAMADOL
  12. DIGOXIN. [Concomitant]
     Active Substance: DIGOXIN
  13. POTASSIUM [Concomitant]
     Active Substance: POTASSIUM

REACTIONS (6)
  - Arthralgia [Unknown]
  - Headache [Recovering/Resolving]
  - Fatigue [Unknown]
  - Nausea [Unknown]
  - Diarrhoea [Recovering/Resolving]
  - Myalgia [Recovering/Resolving]

NARRATIVE: CASE EVENT DATE: 20150908
